FAERS Safety Report 4523848-1 (Version None)
Quarter: 2004Q4

REPORT INFORMATION
  Report Type: 
  Country: None (occurrence: None)
  Receive Date: 20041209
  Receipt Date: 20041209
  Transmission Date: 20050328
  Serious: Yes (Other)
  Sender: FDA-Public Use
  Company Number: None

PATIENT
  Age: 50 Year
  Sex: Female

DRUGS (2)
  1. GABAPENTIN [Suspect]
     Indication: NEURALGIA
     Dosage: 400 MG TID
     Dates: start: 20041104
  2. GABAPENTIN [Suspect]
     Indication: NEURALGIA
     Dosage: 400 MG TID
     Dates: start: 20041123

REACTIONS (4)
  - AFFECTIVE DISORDER [None]
  - DRUG EFFECT DECREASED [None]
  - DYSPHORIA [None]
  - PHARMACEUTICAL PRODUCT COMPLAINT [None]
